FAERS Safety Report 18668861 (Version 1)
Quarter: 2020Q4

REPORT INFORMATION
  Report Type: Spontaneous
  Country: US (occurrence: US)
  Receive Date: 20201226
  Receipt Date: 20201226
  Transmission Date: 20210114
  Serious: No
  Sender: FDA-Public Use
  Company Number: None

PATIENT
  Age: 52 Year
  Sex: Male

DRUGS (1)
  1. ABIRATERONE TAB 250 MG [Suspect]
     Active Substance: ABIRATERONE
     Route: 048
     Dates: start: 20200811

REACTIONS (1)
  - Hypertensive emergency [None]

NARRATIVE: CASE EVENT DATE: 20201226
